FAERS Safety Report 15145824 (Version 1)
Quarter: 2018Q3

REPORT INFORMATION
  Report Type: Spontaneous
  Country: DK (occurrence: DK)
  Receive Date: 20180714
  Receipt Date: 20180714
  Transmission Date: 20181010
  Serious: Yes (Other)
  Sender: FDA-Public Use
  Company Number: DK-TEVA-2018-DK-925996

PATIENT
  Age: 76 Year
  Sex: Male

DRUGS (2)
  1. CAPECITABIN ^ACTAVIS^ [Suspect]
     Active Substance: CAPECITABINE
     Indication: RECTAL CANCER
     Dates: start: 20141121
  2. OXALIPLATIN ^FRESENIUS KABI^ [Suspect]
     Active Substance: OXALIPLATIN
     Indication: RECTAL CANCER
     Dates: start: 20141121

REACTIONS (4)
  - Sensory disturbance [Unknown]
  - Neuropathy peripheral [Unknown]
  - Grip strength decreased [Unknown]
  - Paraesthesia [Unknown]
